FAERS Safety Report 25078389 (Version 3)
Quarter: 2025Q2

REPORT INFORMATION
  Report Type: Spontaneous
  Country: US (occurrence: US)
  Receive Date: 20250314
  Receipt Date: 20250417
  Transmission Date: 20250717
  Serious: No
  Sender: BRISTOL MYERS SQUIBB
  Company Number: US-BRISTOL-MYERS SQUIBB COMPANY-2025-036595

PATIENT
  Age: 75 Year
  Sex: Male

DRUGS (2)
  1. LENALIDOMIDE [Suspect]
     Active Substance: LENALIDOMIDE
     Indication: Plasma cell myeloma recurrent
     Dosage: TAKE 1 CAPSULE WHOLE BY MOUTH WITH WATER AT SAME TIME DAILY ON DAYS 1-21 OF EACH 28-DAY CYCLE
     Route: 048
     Dates: start: 20250226, end: 20250310
  2. DARATUMUMAB [Suspect]
     Active Substance: DARATUMUMAB
     Indication: Product used for unknown indication

REACTIONS (1)
  - Rash [Recovered/Resolved]

NARRATIVE: CASE EVENT DATE: 20250310
